FAERS Safety Report 23937263 (Version 1)
Quarter: 2024Q2

REPORT INFORMATION
  Report Type: Spontaneous
  Country: US (occurrence: US)
  Receive Date: 20240604
  Receipt Date: 20240604
  Transmission Date: 20240715
  Serious: Yes (Death, Other)
  Sender: FDA-Public Use
  Company Number: US-AMGEN-USASP2024108998

PATIENT

DRUGS (6)
  1. PREDNISONE [Suspect]
     Active Substance: PREDNISONE
     Indication: Adult T-cell lymphoma/leukaemia
     Dosage: 100 MILLIGRAM, ON DAYS 1-5
     Route: 065
  2. FILGRASTIM [Suspect]
     Active Substance: FILGRASTIM
     Indication: Product used for unknown indication
     Dosage: UNK
     Route: 065
  3. CYCLOPHOSPHAMIDE [Suspect]
     Active Substance: CYCLOPHOSPHAMIDE
     Indication: Adult T-cell lymphoma/leukaemia
     Dosage: 750 MILLIGRAM/SQ. METER, ON DAY 1
     Route: 065
  4. DOXORUBICIN [Suspect]
     Active Substance: DOXORUBICIN
     Indication: Adult T-cell lymphoma/leukaemia
     Dosage: 50 MILLIGRAM/SQ. METER, ON DAY 1
     Route: 065
  5. ETOPOSIDE [Suspect]
     Active Substance: ETOPOSIDE
     Indication: Adult T-cell lymphoma/leukaemia
     Dosage: 100 MILLIGRAM/SQ. METER, ON DAYS 1-3
     Route: 065
  6. BRENTUXIMAB VEDOTIN [Suspect]
     Active Substance: BRENTUXIMAB VEDOTIN
     Indication: Adult T-cell lymphoma/leukaemia
     Dosage: 1.8 MILLIGRAM/KILOGRAM, ON DAY 1
     Route: 065

REACTIONS (16)
  - Neutropenia [Unknown]
  - Septic shock [Fatal]
  - Hypovolaemic shock [Fatal]
  - Adult T-cell lymphoma/leukaemia [Fatal]
  - Thrombocytopenia [Unknown]
  - Febrile neutropenia [Unknown]
  - Anaemia [Unknown]
  - Colitis [Unknown]
  - Mucosal inflammation [Unknown]
  - COVID-19 [Unknown]
  - Clostridium difficile infection [Unknown]
  - Candida infection [Unknown]
  - Hyponatraemia [Unknown]
  - Vomiting [Unknown]
  - Neuropathy peripheral [Unknown]
  - Therapy partial responder [Unknown]
